FAERS Safety Report 24412104 (Version 2)
Quarter: 2025Q4

REPORT INFORMATION
  Report Type: Spontaneous
  Country: US (occurrence: US)
  Receive Date: 20241008
  Receipt Date: 20251219
  Transmission Date: 20260118
  Serious: Yes (Life-Threatening, Hospitalization, Other)
  Sender: AMGEN
  Company Number: US-AMGEN-USASP2024194445

PATIENT
  Age: 45 Year
  Sex: Female

DRUGS (2)
  1. PREDNISONE [Suspect]
     Active Substance: PREDNISONE
     Indication: Product used for unknown indication
     Dosage: UNK
     Route: 065
  2. MYCOPHENOLATE MOFETIL [Concomitant]
     Active Substance: MYCOPHENOLATE MOFETIL
     Dosage: UNK
     Route: 065

REACTIONS (7)
  - Encephalopathy [Unknown]
  - Fall [Unknown]
  - Ecchymosis [Unknown]
  - Klebsiella bacteraemia [Unknown]
  - Ammonia increased [Unknown]
  - Limb injury [Unknown]
  - Platelet count decreased [Unknown]
